FAERS Safety Report 6166834-0 (Version None)
Quarter: 2009Q2

REPORT INFORMATION
  Report Type: 
  Country: None (occurrence: None)
  Receive Date: 20090423
  Receipt Date: 20090423
  Transmission Date: 20091009
  Serious: Yes (Other)
  Sender: FDA-Public Use
  Company Number: None

PATIENT
  Sex: Female
  Weight: 63.5036 kg

DRUGS (1)
  1. SOLODYN [Suspect]
     Indication: ROSACEA
     Dosage: DAILY
     Dates: start: 20090315, end: 20090318

REACTIONS (3)
  - BREAST DISORDER [None]
  - FEELING ABNORMAL [None]
  - MOOD SWINGS [None]
